FAERS Safety Report 5712711-6 (Version None)
Quarter: 2008Q2

REPORT INFORMATION
  Report Type: 
  Country: None (occurrence: None)
  Receive Date: 20080421
  Receipt Date: 20080421
  Transmission Date: 20081010
  Serious: Yes (Life-Threatening)
  Sender: FDA-Public Use
  Company Number: None

PATIENT
  Age: 54 Year
  Sex: Female
  Weight: 65.7716 kg

DRUGS (2)
  1. BUPROPION HCL XL 300MG ANCHEN [Suspect]
     Indication: FIBROMYALGIA
     Dosage: 1 TABLET DAILY PO
     Route: 048
  2. BUPROPION HCL XL 300MG ANCHEN [Suspect]
     Indication: PREMENSTRUAL SYNDROME
     Dosage: 1 TABLET DAILY PO
     Route: 048

REACTIONS (4)
  - BLISTER [None]
  - DERMATITIS CONTACT [None]
  - HYPERSENSITIVITY [None]
  - SKIN INFECTION [None]
